FAERS Safety Report 17616246 (Version 1)
Quarter: 2020Q2

REPORT INFORMATION
  Report Type: Spontaneous
  Country: BE (occurrence: BE)
  Receive Date: 20200402
  Receipt Date: 20200402
  Transmission Date: 20200713
  Serious: Yes (Hospitalization, Other)
  Sender: FDA-Public Use
  Company Number: BE-VERTEX PHARMACEUTICALS-2019-007690

PATIENT
  Age: 36 Year
  Sex: Female

DRUGS (2)
  1. AMIKACINE [AMIKACIN] [Suspect]
     Active Substance: AMIKACIN
     Indication: PRODUCT USED FOR UNKNOWN INDICATION
     Route: 065
  2. ORKAMBI [Suspect]
     Active Substance: IVACAFTOR\LUMACAFTOR
     Indication: CYSTIC FIBROSIS
     Dosage: UNK
     Route: 048
     Dates: start: 2016

REACTIONS (10)
  - Irritable bowel syndrome [Not Recovered/Not Resolved]
  - Gastrointestinal disorder [Not Recovered/Not Resolved]
  - Renal failure [Unknown]
  - Impaired work ability [Not Recovered/Not Resolved]
  - Pulmonary function test decreased [Not Recovered/Not Resolved]
  - Dyspnoea [Not Recovered/Not Resolved]
  - Sinus disorder [Unknown]
  - Hospitalisation [Unknown]
  - Dialysis [Not Recovered/Not Resolved]
  - Impaired quality of life [Not Recovered/Not Resolved]
